FAERS Safety Report 8606786 (Version 4)
Quarter: 2015Q1

REPORT INFORMATION
  Report Type: Spontaneous
  Country: US (occurrence: US)
  Receive Date: 20120611
  Receipt Date: 20150330
  Transmission Date: 20150721
  Serious: No
  Sender: FDA-Public Use
  Company Number: US-ASTRAZENECA-2012SE35804

PATIENT
  Age: 61 Year
  Sex: Female

DRUGS (26)
  1. PREVACID [Concomitant]
     Active Substance: LANSOPRAZOLE
     Dosage: ONE DAY
  2. ACIPHEX [Concomitant]
     Active Substance: RABEPRAZOLE SODIUM
     Dosage: ONE DAY
  3. DEXILANT [Concomitant]
     Active Substance: DEXLANSOPRAZOLE
     Dosage: ONE DAY
  4. BENICAR [Concomitant]
     Active Substance: OLMESARTAN MEDOXOMIL
     Dosage: 20/125 MG 1 D
  5. OSCAL EXTRA 3D [Concomitant]
     Dosage: 500 M 2D
  6. LIPITOR [Concomitant]
     Active Substance: ATORVASTATIN CALCIUM
     Dates: start: 20060509
  7. CELEBREX [Concomitant]
     Active Substance: CELECOXIB
     Dates: start: 20060814
  8. VITAMIN D3 [Concomitant]
     Active Substance: CHOLECALCIFEROL
     Dosage: 2000 14 2D
  9. SIMVASTATIN. [Concomitant]
     Active Substance: SIMVASTATIN
     Dates: start: 20080310
  10. LEVOTHYROXINE [Concomitant]
     Active Substance: LEVOTHYROXINE
     Dosage: 05 1D
  11. METHOCARBAMOL. [Concomitant]
     Active Substance: METHOCARBAMOL
     Dates: start: 20100809
  12. ACTONEL 125 [Concomitant]
     Dosage: 35 MG, 1W
  13. CLONAZEPAM. [Concomitant]
     Active Substance: CLONAZEPAM
     Dates: start: 20090316
  14. MELOXICAM. [Concomitant]
     Active Substance: MELOXICAM
     Dates: start: 20100809
  15. NEXIUM [Suspect]
     Active Substance: ESOMEPRAZOLE MAGNESIUM
     Route: 048
  16. NEXIUM [Suspect]
     Active Substance: ESOMEPRAZOLE MAGNESIUM
     Route: 048
     Dates: start: 20060814
  17. TURMERIC EXTRA [Concomitant]
     Dosage: 2 D
  18. NEXIUM [Suspect]
     Active Substance: ESOMEPRAZOLE MAGNESIUM
     Dosage: ONE AND TWICE PER DAY
     Route: 048
     Dates: start: 2002, end: 2010
  19. PRILOSEC [Suspect]
     Active Substance: OMEPRAZOLE MAGNESIUM
     Dosage: ONE DAY
     Route: 048
  20. OSTEO BI FLEX [Concomitant]
     Dosage: TRIPLE STRENGTH
  21. BENICAR HCT [Concomitant]
     Active Substance: HYDROCHLOROTHIAZIDE\OLMESARTAN MEDOXOMIL
     Dosage: 20/12.5 MG
     Dates: start: 20100601
  22. PROTONIX [Concomitant]
     Active Substance: PANTOPRAZOLE SODIUM
     Dosage: ONE DAY
  23. CRESTOR [Concomitant]
     Active Substance: ROSUVASTATIN CALCIUM
  24. METHOMINE HCL [Concomitant]
     Dosage: 500 MG 1D
  25. GEMFIBROZIL. [Concomitant]
     Active Substance: GEMFIBROZIL
     Dates: start: 20080509
  26. METRONIDAZOLE. [Concomitant]
     Active Substance: METRONIDAZOLE
     Dates: start: 20060812

REACTIONS (3)
  - Osteoporosis [Unknown]
  - Osteopenia [Unknown]
  - Multiple fractures [Unknown]
